FAERS Safety Report 24905949 (Version 2)
Quarter: 2025Q1

REPORT INFORMATION
  Report Type: Spontaneous
  Country: DO (occurrence: DO)
  Receive Date: 20250130
  Receipt Date: 20250226
  Transmission Date: 20250409
  Serious: No
  Sender: TOLMAR
  Company Number: DO-TOLMAR, INC.-25DO055664

PATIENT
  Age: 70 Year
  Sex: Male

DRUGS (2)
  1. ELIGARD [Suspect]
     Active Substance: LEUPROLIDE ACETATE
     Indication: Product used for unknown indication
     Dates: start: 20241202
  2. ELIGARD [Suspect]
     Active Substance: LEUPROLIDE ACETATE
     Indication: Product used for unknown indication

REACTIONS (3)
  - Intercepted product preparation error [Unknown]
  - Product solubility abnormal [Unknown]
  - Product physical issue [Unknown]

NARRATIVE: CASE EVENT DATE: 20241202
